FAERS Safety Report 9255536 (Version 3)
Quarter: 2014Q3

REPORT INFORMATION
  Report Type: Spontaneous
  Country: US (occurrence: US)
  Receive Date: 20130425
  Receipt Date: 20140711
  Transmission Date: 20150326
  Serious: Yes (Other)
  Sender: FDA-Public Use
  Company Number: US-GLAXOSMITHKLINE-A0983987A

PATIENT
  Age: 56 Year
  Sex: Female

DRUGS (4)
  1. DRESSING [Suspect]
     Active Substance: UNSPECIFIED INGREDIENT
     Indication: PRODUCT USED FOR UNKNOWN INDICATION
  2. ADCIRCA [Concomitant]
     Active Substance: TADALAFIL
  3. FOSAMAX [Concomitant]
     Active Substance: ALENDRONATE SODIUM
  4. FLOLAN [Suspect]
     Active Substance: EPOPROSTENOL SODIUM
     Indication: PULMONARY ARTERIAL HYPERTENSION
     Dosage: 40NGKM CONTINUOUS
     Route: 065
     Dates: start: 20080522

REACTIONS (7)
  - Respiratory tract infection [Unknown]
  - Osteopenia [Unknown]
  - Application site erythema [Unknown]
  - Dyspnoea [Unknown]
  - Cholelithiasis [Unknown]
  - Application site pain [Unknown]
  - Bronchitis [Unknown]
